FAERS Safety Report 22250193 (Version 1)
Quarter: 2023Q2

REPORT INFORMATION
  Report Type: Spontaneous
  Country: US (occurrence: None)
  Receive Date: 20230422
  Receipt Date: 20230422
  Transmission Date: 20230721
  Serious: No
  Sender: FDA-Public Use
  Company Number: None

PATIENT
  Sex: Female
  Weight: 112.94 kg

DRUGS (12)
  1. LENALIDOMIDE [Suspect]
     Active Substance: LENALIDOMIDE
     Indication: Plasma cell myeloma
     Dosage: FREQUENCY : DAILY;?
     Route: 048
     Dates: start: 202209
  2. ASPIRIN [Concomitant]
  3. FENTANYL [Concomitant]
     Active Substance: FENTANYL
  4. FLAXSEED [Concomitant]
     Active Substance: FLAX SEED
  5. GABAPENTIN [Concomitant]
  6. HYDROCDONE-APP [Concomitant]
  7. LEVOTHYROXINE [Concomitant]
  8. METOPROLOL [Concomitant]
     Active Substance: METOPROLOL
  9. NORTRIPTYLINE [Concomitant]
  10. POTASSIUM [Concomitant]
     Active Substance: POTASSIUM
  11. SENOKOT [Concomitant]
     Active Substance: SENNOSIDES
  12. VITAMIN B12 [Concomitant]
     Active Substance: CYANOCOBALAMIN

REACTIONS (1)
  - Therapy interrupted [None]
